FAERS Safety Report 5084544-8 (Version None)
Quarter: 2006Q3

REPORT INFORMATION
  Report Type: 
  Country: None (occurrence: None)
  Receive Date: 20060821
  Receipt Date: 20060804
  Transmission Date: 20061208
  Serious: Yes (Other)
  Sender: FDA-Public Use
  Company Number: JP-MERCK-0608USA01549

PATIENT
  Age: 77 Year
  Sex: Female

DRUGS (17)
  1. FOSAMAX [Suspect]
     Indication: OSTEOPOROSIS
     Route: 048
     Dates: start: 20030201, end: 20060301
  2. PREDNISOLONE [Concomitant]
     Route: 065
     Dates: start: 20010401
  3. CYANOCOBALAMIN [Concomitant]
     Route: 065
     Dates: start: 20010401
  4. RELIFEN [Concomitant]
     Route: 048
     Dates: start: 20010401
  5. BIO THREE [Concomitant]
     Route: 048
     Dates: start: 20010401
  6. AMYL NITRITE [Concomitant]
     Route: 065
     Dates: start: 20010401
  7. PURSENNID [Concomitant]
     Route: 048
     Dates: start: 20010401
  8. ALOSENN [Concomitant]
     Route: 048
     Dates: start: 20010401
  9. MUCODYNE [Concomitant]
     Route: 048
     Dates: start: 20010401
  10. ZOCOR [Suspect]
     Indication: HYPERLIPIDAEMIA
     Route: 048
     Dates: start: 20010401
  11. NORVASC [Suspect]
     Indication: HYPERTENSION
     Route: 048
     Dates: start: 20010401
  12. AMARYL [Concomitant]
     Route: 048
     Dates: start: 20010401
  13. BASEN [Concomitant]
     Route: 048
     Dates: start: 20010401
  14. ACECOL [Concomitant]
     Route: 048
     Dates: start: 20010401
  15. LASIX [Concomitant]
     Route: 065
     Dates: start: 20010401
  16. FARNERATE [Concomitant]
     Route: 061
     Dates: start: 20010401
  17. KETOPROFEN [Concomitant]
     Route: 065
     Dates: start: 20010401

REACTIONS (3)
  - BACK PAIN [None]
  - GAIT DISTURBANCE [None]
  - PAIN IN EXTREMITY [None]
